FAERS Safety Report 21513680 (Version 1)
Quarter: 2022Q4

REPORT INFORMATION
  Report Type: Spontaneous
  Country: US (occurrence: US)
  Receive Date: 20221027
  Receipt Date: 20221027
  Transmission Date: 20230113
  Serious: No
  Sender: FDA-Public Use
  Company Number: US-SA-SAC20221025000548

PATIENT
  Age: 57 Year
  Sex: Male

DRUGS (2)
  1. KEVZARA [Suspect]
     Active Substance: SARILUMAB
     Indication: Rheumatoid arthritis
     Dosage: 200 MG, QOW
     Route: 058
     Dates: start: 2020
  2. METHOTREXATE [Suspect]
     Active Substance: METHOTREXATE
     Dosage: 1 G VIAL

REACTIONS (6)
  - Oropharyngeal pain [Not Recovered/Not Resolved]
  - Inflammation [Not Recovered/Not Resolved]
  - Dysphagia [Recovered/Resolved]
  - Throat irritation [Not Recovered/Not Resolved]
  - Pain [Not Recovered/Not Resolved]
  - Drug effect less than expected [Unknown]
